FAERS Safety Report 4533282-6 (Version None)
Quarter: 2004Q4

REPORT INFORMATION
  Report Type: 
  Country: None (occurrence: None)
  Receive Date: 20041220
  Receipt Date: 20041220
  Transmission Date: 20050328
  Serious: Yes (Death)
  Sender: FDA-Public Use
  Company Number: None

PATIENT
  Age: 43 Year
  Sex: Female

DRUGS (1)
  1. CAMPATH [Suspect]

REACTIONS (6)
  - ANOREXIA [None]
  - IMMUNE SYSTEM DISORDER [None]
  - INFLUENZA [None]
  - MEDICATION ERROR [None]
  - NASOPHARYNGITIS [None]
  - WHITE BLOOD CELL COUNT DECREASED [None]
